FAERS Safety Report 24865008 (Version 1)
Quarter: 2025Q1

REPORT INFORMATION
  Report Type: Spontaneous
  Country: US (occurrence: US)
  Receive Date: 20250121
  Receipt Date: 20250121
  Transmission Date: 20250409
  Serious: Yes (Other)
  Sender: STRIDES
  Company Number: US-STRIDES ARCOLAB LIMITED-2024SP009017

PATIENT
  Age: 89 Year
  Sex: Female

DRUGS (6)
  1. METHOTREXATE [Suspect]
     Active Substance: METHOTREXATE
     Indication: Necrotising scleritis
     Route: 065
  2. METHOTREXATE [Suspect]
     Active Substance: METHOTREXATE
     Indication: Immunomodulatory therapy
  3. ADALIMUMAB [Suspect]
     Active Substance: ADALIMUMAB
     Indication: Necrotising scleritis
     Route: 065
  4. ADALIMUMAB [Suspect]
     Active Substance: ADALIMUMAB
     Indication: Immunomodulatory therapy
  5. INFLIXIMAB [Suspect]
     Active Substance: INFLIXIMAB
     Indication: Necrotising scleritis
     Route: 065
  6. INFLIXIMAB [Suspect]
     Active Substance: INFLIXIMAB
     Indication: Immunomodulatory therapy

REACTIONS (2)
  - Treatment failure [Unknown]
  - Off label use [Unknown]
